FAERS Safety Report 7674144-5 (Version None)
Quarter: 2011Q3

REPORT INFORMATION
  Report Type: 
  Country: None (occurrence: None)
  Receive Date: 20110808
  Receipt Date: 20110722
  Transmission Date: 20111222
  Serious: Yes (Other)
  Sender: FDA-Public Use
  Company Number: 2011MA009427

PATIENT
  Age: 70 Year
  Sex: Female
  Weight: 68.0396 kg

DRUGS (23)
  1. METOCLOPRAMIDE [Suspect]
     Indication: GASTRITIS
     Dosage: 10 MG ;QID;
     Dates: start: 20030301
  2. METOCLOPRAMIDE [Suspect]
     Indication: GASTROOESOPHAGEAL REFLUX DISEASE
     Dosage: 10 MG ;QID;
     Dates: start: 20030301
  3. FIORICET [Concomitant]
  4. ELAVIL [Concomitant]
  5. ATENOLOL [Concomitant]
  6. CIMETIDINE [Concomitant]
  7. SKELAXIN [Concomitant]
  8. CLINDEX [Concomitant]
  9. ULTRAM [Concomitant]
  10. NEXIUM [Concomitant]
  11. EFFEXOR [Concomitant]
  12. AMITRIPTYLINE HCL [Concomitant]
  13. VICODIN [Concomitant]
  14. SINEQUAN [Concomitant]
  15. XANAX [Concomitant]
  16. DESYREL [Concomitant]
  17. MIDRIN [Concomitant]
  18. PROCARDIA [Concomitant]
  19. LESCOL [Concomitant]
  20. ZYRTEC [Concomitant]
  21. LEXAPRO [Concomitant]
  22. LIPITOR [Concomitant]
  23. ZOLOFT [Concomitant]

REACTIONS (24)
  - DYSARTHRIA [None]
  - HYPERTENSION [None]
  - ABDOMINAL PAIN UPPER [None]
  - DYSPEPSIA [None]
  - FATIGUE [None]
  - CEREBRAL ATROPHY [None]
  - BLOOD BILIRUBIN INCREASED [None]
  - FLATULENCE [None]
  - ERUCTATION [None]
  - IMPAIRED GASTRIC EMPTYING [None]
  - DYSKINESIA [None]
  - ANXIETY [None]
  - PAIN [None]
  - GASTRITIS [None]
  - HOT FLUSH [None]
  - MASTICATION DISORDER [None]
  - DEPRESSION [None]
  - PROTEIN TOTAL INCREASED [None]
  - TARDIVE DYSKINESIA [None]
  - DECREASED APPETITE [None]
  - TONGUE DISORDER [None]
  - NAUSEA [None]
  - HEADACHE [None]
  - BLOOD UREA INCREASED [None]
